FAERS Safety Report 10328554 (Version 1)
Quarter: 2014Q3

REPORT INFORMATION
  Report Type: Spontaneous
  Country: US (occurrence: None)
  Receive Date: 20140717
  Receipt Date: 20140717
  Transmission Date: 20150326
  Serious: Yes (Other)
  Sender: FDA-Public Use
  Company Number: None

PATIENT
  Age: 63 Year
  Sex: Female
  Weight: 64.5 kg

DRUGS (2)
  1. FENTANYL. [Suspect]
     Active Substance: FENTANYL
     Indication: CHEST PAIN
     Dosage: Q72H
     Route: 061
     Dates: start: 2013, end: 2014
  2. FENTANYL. [Suspect]
     Active Substance: FENTANYL
     Indication: BACK PAIN
     Dosage: Q72H
     Route: 061
     Dates: start: 2013, end: 2014

REACTIONS (5)
  - Rash [None]
  - Blister [None]
  - Laceration [None]
  - Skin irritation [None]
  - Product substitution issue [None]

NARRATIVE: CASE EVENT DATE: 20140627
